FAERS Safety Report 7761877 (Version 17)
Quarter: 2020Q2

REPORT INFORMATION
  Report Type: Spontaneous
  Country: GB (occurrence: GB)
  Receive Date: 20110114
  Receipt Date: 20200513
  Transmission Date: 20200714
  Serious: Yes (Hospitalization, Congenital Anomaly, Other)
  Sender: FDA-Public Use
  Company Number: GB-009507513-1007GBR00039

PATIENT
  Age: 34 Year
  Sex: Female

DRUGS (11)
  1. ISENTRESS [Suspect]
     Active Substance: RALTEGRAVIR POTASSIUM
     Indication: HIV INFECTION
     Dosage: 800 MG, QID (DOSE REPORTED AS: 3200 MG, QD)
     Route: 048
     Dates: start: 20100610
  2. TENOFOVIR DISOPROXIL FUMARATE. [Suspect]
     Active Substance: TENOFOVIR DISOPROXIL FUMARATE
     Indication: HIV INFECTION
     Dosage: UNK
     Route: 048
     Dates: start: 20100610
  3. ZIDOVUDINE. [Suspect]
     Active Substance: ZIDOVUDINE
     Dosage: 800 MG, QD
     Route: 048
     Dates: start: 20100610
  4. ZIDOVUDINE. [Suspect]
     Active Substance: ZIDOVUDINE
     Indication: ANTIVIRAL TREATMENT
     Dosage: 600 MG, QD
     Route: 048
     Dates: start: 20090110, end: 20100610
  5. LAMIVUDINE. [Suspect]
     Active Substance: LAMIVUDINE
     Dosage: UNK
     Route: 048
     Dates: start: 20100610
  6. ALUVIA [Suspect]
     Active Substance: LOPINAVIR\RITONAVIR
     Indication: ANTIVIRAL TREATMENT
     Dosage: UNK
     Route: 048
     Dates: start: 20100610
  7. NEVIRAPINE. [Suspect]
     Active Substance: NEVIRAPINE
     Indication: ANTIVIRAL TREATMENT
     Dosage: 400 MG, QD
     Route: 048
     Dates: start: 20090101, end: 20100610
  8. LAMIVUDINE. [Suspect]
     Active Substance: LAMIVUDINE
     Indication: ANTIVIRAL TREATMENT
     Dosage: 300 MG, QD
     Route: 048
     Dates: start: 20090101, end: 20100610
  9. RALTEGRAVIR POTASSIUM [Concomitant]
     Active Substance: RALTEGRAVIR POTASSIUM
     Indication: HIV INFECTION
     Dosage: 1 DOSAGE FORM, QD; GESTATION PERIOD AT TIME OF EXPOSURE: 37 WEEKS
     Route: 048
     Dates: start: 20100610
  10. TENOFOVIR DISOPROXIL FUMARATE. [Suspect]
     Active Substance: TENOFOVIR DISOPROXIL FUMARATE
     Indication: ANTIVIRAL TREATMENT
     Dosage: 300 MG, QD
     Route: 048
     Dates: start: 20100610
  11. ALUVIA [Suspect]
     Active Substance: LOPINAVIR\RITONAVIR
     Indication: HIV INFECTION

REACTIONS (5)
  - Caesarean section [Unknown]
  - Aspartate aminotransferase increased [Unknown]
  - Hepatocellular injury [Unknown]
  - Alanine aminotransferase increased [Unknown]
  - Maternal exposure during pregnancy [Recovered/Resolved]

NARRATIVE: CASE EVENT DATE: 20100629
